FAERS Safety Report 20097191 (Version 1)
Quarter: 2021Q4

REPORT INFORMATION
  Report Type: Spontaneous
  Country: US (occurrence: US)
  Receive Date: 20211122
  Receipt Date: 20211122
  Transmission Date: 20220303
  Serious: Yes (Death, Other)
  Sender: FDA-Public Use
  Company Number: US-GLAXOSMITHKLINE-US2021GSK238052

PATIENT

DRUGS (4)
  1. ZANTAC [Suspect]
     Active Substance: RANITIDINE HYDROCHLORIDE
     Indication: Dyspepsia
     Dosage: 300 MG ONCE OR TWICE  PER DAY
     Dates: start: 201501, end: 202005
  2. ZANTAC [Suspect]
     Active Substance: RANITIDINE HYDROCHLORIDE
     Indication: Dyspepsia
     Dosage: 300 MG ONCE OR TWICE  PER DAY
     Route: 065
     Dates: start: 201501, end: 202005
  3. ZANTAC [Suspect]
     Active Substance: RANITIDINE HYDROCHLORIDE
     Indication: Dyspepsia
     Dosage: 300 MG ONCE OR TWICE  PER DAY
     Route: 065
     Dates: start: 201501, end: 202005
  4. RANITIDINE [Suspect]
     Active Substance: RANITIDINE
     Indication: Dyspepsia
     Dosage: 300 MG ONCE OR TWICE  PER DAY
     Route: 065
     Dates: start: 201501, end: 202005

REACTIONS (2)
  - Death [Fatal]
  - Renal cancer [Unknown]
